FAERS Safety Report 5911790-0 (Version None)
Quarter: 2008Q4

REPORT INFORMATION
  Report Type: 
  Country: None (occurrence: None)
  Receive Date: 20081003
  Receipt Date: 20080925
  Transmission Date: 20090506
  Serious: Yes (Death)
  Sender: FDA-Public Use
  Company Number: B0539184A

PATIENT
  Age: 18 Month
  Sex: Male

DRUGS (9)
  1. MELPHALAN (FORMULATION UNKNOWN) (GENERIC) (MELPHALAN [Suspect]
     Indication: BONE MARROW TRANSPLANT
     Dosage: INTRAVENOUS
     Route: 042
  2. FLUDARABINE PHOSPHATE [Suspect]
     Indication: BONE MARROW TRANSPLANT
  3. TREOSULFAN (FORMULATION UNKNOWN) (TREOSULFAN) [Suspect]
     Indication: BONE MARROW TRANSPLANT
     Dosage: INTRAVENOUS
     Route: 042
  4. ANTITHYMOCITE IG [Concomitant]
  5. CYCLOSPORINE [Concomitant]
  6. MYCOPHENOLATE MOFETIL [Concomitant]
  7. ANTIBIOTICS [Concomitant]
  8. CO-TRIMOXAZOLE [Concomitant]
  9. DEFIBROTIDE [Concomitant]

REACTIONS (11)
  - BRONCHITIS [None]
  - DIFFUSE ALVEOLAR DAMAGE [None]
  - DRUG INEFFECTIVE [None]
  - DRUG TOXICITY [None]
  - IDIOPATHIC PNEUMONIA SYNDROME [None]
  - PLEURAL EFFUSION [None]
  - PNEUMONITIS [None]
  - PULMONARY HAEMORRHAGE [None]
  - PULMONARY NECROSIS [None]
  - RESPIRATORY DISTRESS [None]
  - RESPIRATORY FAILURE [None]
